FAERS Safety Report 7998810-7 (Version None)
Quarter: 2011Q4

REPORT INFORMATION
  Report Type: 
  Country: None (occurrence: None)
  Receive Date: 20111221
  Receipt Date: 20111215
  Transmission Date: 20120403
  Serious: Yes (Hospitalization)
  Sender: FDA-Public Use
  Company Number: US-GLAXOSMITHKLINE-A0889239A

PATIENT
  Age: 57 Year
  Sex: Male
  Weight: 98.6 kg

DRUGS (1)
  1. AVANDIA [Suspect]
     Indication: DIABETES MELLITUS
     Route: 048
     Dates: start: 20010816, end: 20090818

REACTIONS (3)
  - CARDIOVASCULAR DISORDER [None]
  - DIZZINESS [None]
  - CEREBROVASCULAR ACCIDENT [None]
